FAERS Safety Report 4286827-8 (Version None)
Quarter: 2004Q1

REPORT INFORMATION
  Report Type: 
  Country: None (occurrence: None)
  Receive Date: 20040204
  Receipt Date: 20040130
  Transmission Date: 20041129
  Serious: Yes (Hospitalization)
  Sender: FDA-Public Use
  Company Number: CA-JNJFOC-20030902334

PATIENT
  Age: 39 Year
  Sex: Male

DRUGS (4)
  1. DURAGESIC [Suspect]
     Dosage: SEE IMAGE
     Route: 062
     Dates: start: 19960101, end: 19970101
  2. DURAGESIC [Suspect]
     Dosage: SEE IMAGE
     Route: 062
     Dates: start: 19990101
  3. DICETEL (PINAVERIUM BROMIDE) [Concomitant]
  4. LIPITOR [Concomitant]

REACTIONS (3)
  - APPLICATION SITE REACTION [None]
  - BACK PAIN [None]
  - PHARMACEUTICAL PRODUCT COMPLAINT [None]
